FAERS Safety Report 7399569-7 (Version None)
Quarter: 2011Q1

REPORT INFORMATION
  Report Type: 
  Country: None (occurrence: None)
  Receive Date: 20110329
  Receipt Date: 20110315
  Transmission Date: 20110831
  Serious: Yes (Hospitalization)
  Sender: FDA-Public Use
  Company Number: UTC-005732

PATIENT
  Age: 33 Year
  Sex: Female
  Weight: 104.5 kg

DRUGS (9)
  1. POTASSIUM CHLORIDE [Concomitant]
  2. DIURETICS [Concomitant]
  3. LETAIRIS [Concomitant]
  4. REMODULIN [Suspect]
     Dosage: 96.48 UG/KG (0.067 UG/KG, 1 IN 1 MIN) INTRAVENOUS
     Route: 042
  5. PLAVIX [Concomitant]
  6. LOMOTIL [Concomitant]
  7. COUMADIN [Concomitant]
  8. ASPIRIN [Concomitant]
  9. PREDNISONE [Concomitant]

REACTIONS (9)
  - GASTROINTESTINAL HAEMORRHAGE [None]
  - PAIN IN JAW [None]
  - PAIN IN EXTREMITY [None]
  - INTRACARDIAC THROMBUS [None]
  - FLUSHING [None]
  - HAEMATOMA [None]
  - DIARRHOEA [None]
  - ANEURYSM [None]
  - HEADACHE [None]
